FAERS Safety Report 14714463 (Version 3)
Quarter: 2018Q2

REPORT INFORMATION
  Report Type: Spontaneous
  Country: US (occurrence: US)
  Receive Date: 20180404
  Receipt Date: 20180626
  Transmission Date: 20180711
  Serious: No
  Sender: FDA-Public Use
  Company Number: US-GLAXOSMITHKLINE-US2018055942

PATIENT
  Sex: Female
  Weight: 82.99 kg

DRUGS (1)
  1. INCRUSE ELLIPTA [Suspect]
     Active Substance: UMECLIDINIUM BROMIDE
     Indication: PRODUCT USED FOR UNKNOWN INDICATION
     Dosage: 1 PUFF(S), QD
     Route: 055
     Dates: start: 20171206, end: 20180504

REACTIONS (3)
  - Wrong technique in device usage process [Unknown]
  - Epistaxis [Recovered/Resolved]
  - Nasal congestion [Recovered/Resolved]
